FAERS Safety Report 6126511-9 (Version None)
Quarter: 2009Q1

REPORT INFORMATION
  Report Type: 
  Country: None (occurrence: None)
  Receive Date: 20090320
  Receipt Date: 20090311
  Transmission Date: 20090719
  Serious: Yes (Other)
  Sender: FDA-Public Use
  Company Number: US-PFIZER INC-2009182721

PATIENT
  Age: 70 Year
  Sex: Male

DRUGS (2)
  1. LIPITOR [Suspect]
     Indication: HYPERLIPIDAEMIA
     Dosage: UNK
     Dates: start: 20050101, end: 20081101
  2. TRELSTAR LA [Suspect]
     Indication: PROSTATE CANCER
     Dosage: 11.25 MG, EVERY 3 MONTHS
     Route: 030
     Dates: start: 20070101

REACTIONS (2)
  - LIVER FUNCTION TEST ABNORMAL [None]
  - PROSTATE CANCER [None]
